FAERS Safety Report 8485545-X (Version None)
Quarter: 2012Q3

REPORT INFORMATION
  Report Type: 
  Country: None (occurrence: None)
  Receive Date: 20120703
  Receipt Date: 20120622
  Transmission Date: 20120928
  Serious: Yes (Life-Threatening)
  Sender: FDA-Public Use
  Company Number: FR-FRI-1000036771

PATIENT
  Sex: Female

DRUGS (6)
  1. CRESTOR [Concomitant]
     Dates: end: 20120606
  2. RAMIPRIL [Concomitant]
  3. KARDEGIC [Concomitant]
  4. ESCITALOPRAM [Suspect]
     Dosage: 10 MG
     Route: 048
     Dates: start: 20120603, end: 20120607
  5. ESCITALOPRAM [Suspect]
     Dosage: 20 MG
     Route: 048
     Dates: start: 20120608, end: 20120611
  6. ATHYMIL [Suspect]
     Dosage: 10 MG
     Route: 048
     Dates: start: 20120606

REACTIONS (1)
  - ATRIOVENTRICULAR BLOCK COMPLETE [None]
